FAERS Safety Report 10074472 (Version 1)
Quarter: 2014Q2

REPORT INFORMATION
  Report Type: Spontaneous
  Country: US (occurrence: US)
  Receive Date: 20140411
  Receipt Date: 20140411
  Transmission Date: 20141212
  Serious: No
  Sender: FDA-Public Use
  Company Number: US-SA-2013SA098045

PATIENT
  Age: 53 Year
  Sex: Female
  Weight: 63.5 kg

DRUGS (2)
  1. ALLEGRA D [Suspect]
     Indication: SINUSITIS
     Dosage: 60/120 MG
     Route: 048
     Dates: start: 20130906, end: 20130908
  2. ANTIBIOTICS [Concomitant]

REACTIONS (2)
  - Rash [Recovered/Resolved]
  - Urticaria [Recovered/Resolved]
